FAERS Safety Report 18255260 (Version 1)
Quarter: 2020Q3

REPORT INFORMATION
  Report Type: Spontaneous
  Country: CN (occurrence: CN)
  Receive Date: 20200911
  Receipt Date: 20200911
  Transmission Date: 20201103
  Serious: Yes (Other)
  Sender: FDA-Public Use
  Company Number: CN-PFIZER INC-2020349807

PATIENT
  Age: 27 Year
  Sex: Male
  Weight: 47.4 kg

DRUGS (8)
  1. CELLCEPT [Concomitant]
     Active Substance: MYCOPHENOLATE MOFETIL\MYCOPHENOLATE MOFETIL HYDROCHLORIDE
     Indication: IMMUNOSUPPRESSANT DRUG THERAPY
     Dosage: 500 MG, 2X/DAY
     Route: 048
     Dates: start: 20191217, end: 20200106
  2. SANDIMMUN [Concomitant]
     Active Substance: CYCLOSPORINE
     Indication: IMMUNOSUPPRESSANT DRUG THERAPY
     Dosage: 45 MG, 2X/DAY
     Route: 041
     Dates: start: 20191217, end: 20200108
  3. METHOTREXATE. [Suspect]
     Active Substance: METHOTREXATE
     Dosage: 17 MG, 1X/DAY
     Route: 037
     Dates: start: 20191207, end: 20191207
  4. METHOTREXATE. [Suspect]
     Active Substance: METHOTREXATE
     Dosage: 26 MG, 1X/DAY
     Route: 037
     Dates: start: 20191117, end: 20191117
  5. METHOTREXATE. [Suspect]
     Active Substance: METHOTREXATE
     Dosage: 17 MG, 1X/DAY
     Route: 037
     Dates: start: 20191129, end: 20191129
  6. METHOTREXATE. [Suspect]
     Active Substance: METHOTREXATE
     Indication: LYMPHOCYTIC LEUKAEMIA
     Dosage: 10 MG, 1X/DAY
     Route: 037
     Dates: start: 20191112, end: 20191112
  7. SANDIMMUN NEORAL [Concomitant]
     Active Substance: CYCLOSPORINE
     Indication: IMMUNOSUPPRESSANT DRUG THERAPY
     Dosage: 50 MG, 2X/DAY
     Route: 048
     Dates: start: 20191219, end: 20191220
  8. SANDIMMUN NEORAL [Concomitant]
     Active Substance: CYCLOSPORINE
     Dosage: 75 MG, DAILY (50 MG, 1X/DAY AND 25 MG, 1X/DAY)
     Route: 048
     Dates: start: 20191221, end: 20191227

REACTIONS (1)
  - Cystitis haemorrhagic [Recovering/Resolving]

NARRATIVE: CASE EVENT DATE: 20191227
